FAERS Safety Report 17543959 (Version 1)
Quarter: 2020Q1

REPORT INFORMATION
  Report Type: Spontaneous
  Country: DE (occurrence: DE)
  Receive Date: 20200316
  Receipt Date: 20200316
  Transmission Date: 20200409
  Serious: Yes (Life-Threatening, Hospitalization)
  Sender: FDA-Public Use
  Company Number: DE-TEVA-2020-DE-1200229

PATIENT
  Age: 16 Year
  Sex: Female
  Weight: 62 kg

DRUGS (1)
  1. CETIRIZIN [Suspect]
     Active Substance: CETIRIZINE HYDROCHLORIDE
     Indication: HYPERSENSITIVITY
     Dosage: DAILY DOSE: 10 MG MILLGRAM(S) EVERY DAYS
     Route: 048

REACTIONS (6)
  - Anaphylactic reaction [Recovered/Resolved]
  - Pruritus [Recovered/Resolved]
  - Nausea [Recovered/Resolved]
  - Dizziness [Recovered/Resolved]
  - Dyspnoea [Recovered/Resolved]
  - Rash [Recovered/Resolved]

NARRATIVE: CASE EVENT DATE: 20190117
